FAERS Safety Report 6222956-7 (Version None)
Quarter: 2009Q2

REPORT INFORMATION
  Report Type: 
  Country: None (occurrence: None)
  Receive Date: 20090611
  Receipt Date: 20090506
  Transmission Date: 20091009
  Serious: No
  Sender: FDA-Public Use
  Company Number: US-BAYER-200918136NA

PATIENT
  Age: 60 Year
  Sex: Male

DRUGS (3)
  1. AVELOX [Suspect]
     Indication: PNEUMONIA
     Dosage: TOTAL DAILY DOSE: 400 MG  UNIT DOSE: 400 MG
     Dates: start: 20090228, end: 20090304
  2. LEXAPRO [Concomitant]
  3. LISINOPRIL [Concomitant]

REACTIONS (2)
  - JOINT INJURY [None]
  - MUSCULOSKELETAL DISCOMFORT [None]
